FAERS Safety Report 12527936 (Version 4)
Quarter: 2016Q3

REPORT INFORMATION
  Report Type: Spontaneous
  Country: US (occurrence: US)
  Receive Date: 20160705
  Receipt Date: 20160906
  Transmission Date: 20161109
  Serious: Yes (Other)
  Sender: FDA-Public Use
  Company Number: US-EMERGENT BIOSOLUTIONS-16BA00073SP

PATIENT

DRUGS (9)
  1. PROTONIX [Concomitant]
     Active Substance: PANTOPRAZOLE SODIUM
     Dosage: 40 MG, QD
     Route: 042
     Dates: start: 20160610, end: 20160616
  2. AMIDATE [Concomitant]
     Active Substance: ETOMIDATE
     Dosage: 20 MG, SINGLE
     Route: 042
     Dates: start: 20160610, end: 20160610
  3. LOVENOX [Concomitant]
     Active Substance: ENOXAPARIN SODIUM
     Dosage: 40 MG, QD
     Route: 058
     Dates: start: 20160610, end: 20160616
  4. ZOFRAN [Concomitant]
     Active Substance: ONDANSETRON HYDROCHLORIDE
     Dosage: 4 MG, SINGLE
     Route: 042
     Dates: start: 20160610, end: 20160610
  5. BAT [Suspect]
     Active Substance: EQUINE BOTULINUM NEUROTOXIN A/B/C/D/E/F/G IMMUNE FAB2
     Indication: BOTULISM
     Dosage: 176 ML, SINGLE
     Route: 042
     Dates: start: 20160610, end: 20160610
  6. PROPOFOL. [Concomitant]
     Active Substance: PROPOFOL
     Dosage: 10 UNK, UNK
     Route: 042
     Dates: start: 20160610, end: 20160614
  7. REGLAN [Concomitant]
     Active Substance: METOCLOPRAMIDE HYDROCHLORIDE
     Dosage: 5 MG, SINGLE
     Route: 042
     Dates: start: 20160611, end: 20160611
  8. FENTANYL CITRATE AND ROPIVACAINE HCL [Concomitant]
     Dosage: 50 MCG/ML, UNK
     Route: 042
     Dates: start: 20160610, end: 20160616
  9. ZEMURON [Concomitant]
     Active Substance: ROCURONIUM BROMIDE
     Dosage: 1 MG/KG, SINGLE
     Route: 042
     Dates: start: 20160610, end: 20160610

REACTIONS (3)
  - Blood pressure decreased [Recovered/Resolved]
  - Pneumonia [Recovered/Resolved]
  - Bradycardia [Recovered/Resolved]

NARRATIVE: CASE EVENT DATE: 20160610
